FAERS Safety Report 16855762 (Version 1)
Quarter: 2019Q4

REPORT INFORMATION
  Report Type: Spontaneous
  Country: US (occurrence: US)
  Receive Date: 20190926
  Receipt Date: 20190926
  Transmission Date: 20200122
  Serious: Yes (Hospitalization)
  Sender: FDA-Public Use
  Company Number: None

PATIENT
  Sex: Female

DRUGS (19)
  1. CLARITHROMYCIN. [Concomitant]
     Active Substance: CLARITHROMYCIN
  2. FUROSEMIDE. [Concomitant]
     Active Substance: FUROSEMIDE
  3. LANSOPRAZOLE. [Concomitant]
     Active Substance: LANSOPRAZOLE
  4. VITAMIN B6 [Concomitant]
     Active Substance: PYRIDOXINE HYDROCHLORIDE
  5. AMOXICILLIN. [Concomitant]
     Active Substance: AMOXICILLIN
  6. CLARITIN [Concomitant]
     Active Substance: LORATADINE
  7. KLOR-CON [Concomitant]
     Active Substance: POTASSIUM CHLORIDE
  8. OMEPRAZOLE. [Concomitant]
     Active Substance: OMEPRAZOLE
  9. VITAMIN D3 [Concomitant]
     Active Substance: CHOLECALCIFEROL
  10. ALBUTEROL. [Concomitant]
     Active Substance: ALBUTEROL
  11. LOSARTAN. [Concomitant]
     Active Substance: LOSARTAN
  12. ADVAIR HFA [Concomitant]
     Active Substance: FLUTICASONE PROPIONATE\SALMETEROL XINAFOATE
  13. PRE-NATAL TAB [Concomitant]
  14. DIGOXIN. [Concomitant]
     Active Substance: DIGOXIN
  15. VITAMIN C [Concomitant]
     Active Substance: ASCORBIC ACID
  16. AMLODIPINE [Concomitant]
     Active Substance: AMLODIPINE BESYLATE
  17. SOTALOL HCL [Concomitant]
     Active Substance: SOTALOL
  18. TADALAFIL. [Suspect]
     Active Substance: TADALAFIL
     Indication: PULMONARY HYPERTENSION
     Route: 048
     Dates: start: 20180926
  19. SINGULAIR [Concomitant]
     Active Substance: MONTELUKAST SODIUM

REACTIONS (2)
  - Chronic obstructive pulmonary disease [None]
  - Condition aggravated [None]
